FAERS Safety Report 9693839 (Version 1)
Quarter: 2013Q4

REPORT INFORMATION
  Report Type: Spontaneous
  Country: AU (occurrence: AU)
  Receive Date: 20131118
  Receipt Date: 20131118
  Transmission Date: 20140711
  Serious: Yes (Other)
  Sender: FDA-Public Use
  Company Number: AU-ABBVIE-13P-008-1157665-00

PATIENT
  Sex: Male

DRUGS (5)
  1. VALPROATE SODIUM [Suspect]
     Indication: PRODUCT USED FOR UNKNOWN INDICATION
  2. PARACETAMOL [Suspect]
     Indication: PRODUCT USED FOR UNKNOWN INDICATION
  3. RANITIDINE [Suspect]
     Indication: PRODUCT USED FOR UNKNOWN INDICATION
  4. PENICILLIN NOS [Suspect]
     Indication: PRODUCT USED FOR UNKNOWN INDICATION
  5. PHENYTOIN SODIUM [Suspect]
     Indication: PRODUCT USED FOR UNKNOWN INDICATION

REACTIONS (1)
  - Tubulointerstitial nephritis [Unknown]
